FAERS Safety Report 6545997-9 (Version None)
Quarter: 2010Q1

REPORT INFORMATION
  Report Type: 
  Country: None (occurrence: None)
  Receive Date: 20100121
  Receipt Date: 20100121
  Transmission Date: 20100710
  Serious: No
  Sender: FDA-Public Use
  Company Number: None

PATIENT
  Age: 79 Year
  Sex: Male
  Weight: 76.2043 kg

DRUGS (1)
  1. DORZOLAMIDE HYDROCHLORIDE [Suspect]
     Indication: INTRAOCULAR PRESSURE INCREASED
     Dosage: 1 DROP EACH EYE 2 TIMES DAILY INTRACORNEAL
     Route: 021
     Dates: start: 20091102, end: 20100111

REACTIONS (5)
  - ECONOMIC PROBLEM [None]
  - EYE IRRITATION [None]
  - EYE PAIN [None]
  - NO THERAPEUTIC RESPONSE [None]
  - PRODUCT SUBSTITUTION ISSUE [None]
